FAERS Safety Report 25667505 (Version 1)
Quarter: 2025Q3

REPORT INFORMATION
  Report Type: Spontaneous
  Country: US (occurrence: US)
  Receive Date: 20250811
  Receipt Date: 20250811
  Transmission Date: 20251020
  Serious: No
  Sender: ELI LILLY AND COMPANY
  Company Number: US-ELI_LILLY_AND_COMPANY-US202508004472

PATIENT
  Age: 75 Year
  Sex: Female

DRUGS (4)
  1. EMGALITY [Suspect]
     Active Substance: GALCANEZUMAB-GNLM
     Indication: Product used for unknown indication
     Route: 065
  2. OMEPRAZOLE [Concomitant]
     Active Substance: OMEPRAZOLE
     Indication: Gastrointestinal disorder
     Dosage: 40 MG, DAILY
     Route: 065
     Dates: start: 20250801
  3. PROBIOTICS [PROBIOTICS NOS] [Concomitant]
     Indication: Gastrointestinal disorder
     Route: 065
     Dates: start: 20250801
  4. GAS-X MAX STRENGTH [Concomitant]
     Indication: Gastrointestinal disorder
     Route: 065
     Dates: start: 20250801

REACTIONS (3)
  - Abdominal distension [Not Recovered/Not Resolved]
  - Diarrhoea [Recovered/Resolved]
  - Dyspepsia [Unknown]
